FAERS Safety Report 4886499-5 (Version None)
Quarter: 2005Q4

REPORT INFORMATION
  Report Type: 
  Country: None (occurrence: None)
  Receive Date: 20051220
  Receipt Date: 20050111
  Transmission Date: 20060501
  Serious: Yes (Hospitalization, Disabling)
  Sender: FDA-Public Use
  Company Number: HQWYE395405JAN05

PATIENT
  Age: 46 Year
  Sex: Female
  Weight: 90.35 kg

DRUGS (8)
  1. EFFEXOR XR [Suspect]
     Indication: DEPRESSION
     Dosage: 75 MG 1X PER 1 DAY, ORAL
     Route: 048
     Dates: start: 19990101, end: 20041001
  2. INSULIN [Concomitant]
  3. ZOCOR [Concomitant]
  4. CLONAZEPAM [Concomitant]
  5. LOTREL [Concomitant]
  6. DYAZIDE [Concomitant]
  7. HUMULIN R [Concomitant]
  8. HUMULIN N [Concomitant]

REACTIONS (9)
  - ANXIETY [None]
  - CONDITION AGGRAVATED [None]
  - DEPRESSION [None]
  - DIABETES MELLITUS [None]
  - HYPERTENSION [None]
  - NERVOUSNESS [None]
  - SEXUAL DYSFUNCTION [None]
  - SLEEP DISORDER [None]
  - WEIGHT INCREASED [None]
